FAERS Safety Report 16933755 (Version 2)
Quarter: 2019Q4

REPORT INFORMATION
  Report Type: Spontaneous
  Country: US (occurrence: US)
  Receive Date: 20191018
  Receipt Date: 20191026
  Transmission Date: 20200122
  Serious: No
  Sender: FDA-Public Use
  Company Number: US-TEVA-2019-US-1126098

PATIENT
  Age: 83 Year
  Sex: Female

DRUGS (2)
  1. CLONAZEPAM TEVA [Suspect]
     Active Substance: CLONAZEPAM
     Indication: SLEEP DISORDER
  2. CLONAZEPAM TEVA [Suspect]
     Active Substance: CLONAZEPAM
     Indication: ANXIETY
     Dosage: 1 MG
     Route: 065

REACTIONS (8)
  - Dizziness [Unknown]
  - Drug ineffective [Unknown]
  - Insomnia [Unknown]
  - Limb injury [Unknown]
  - Product substitution issue [Unknown]
  - Fatigue [Unknown]
  - Fall [Unknown]
  - Anxiety [Unknown]
